FAERS Safety Report 25834712 (Version 4)
Quarter: 2025Q4

REPORT INFORMATION
  Report Type: Report from Study
  Country: GB (occurrence: GB)
  Receive Date: 20250923
  Receipt Date: 20251217
  Transmission Date: 20260117
  Serious: Yes (Hospitalization, Other)
  Sender: AMGEN
  Company Number: GB-BEH-2025219198

PATIENT
  Age: 74 Year
  Sex: Female
  Weight: 62 kg

DRUGS (19)
  1. AVACOPAN [Suspect]
     Active Substance: AVACOPAN
     Indication: Anti-neutrophil cytoplasmic antibody positive vasculitis
     Dosage: 30 MG, BID
     Route: 048
     Dates: start: 20240829
  2. CYCLOPHOSPHAMIDE [Concomitant]
     Active Substance: CYCLOPHOSPHAMIDE
     Indication: Anti-neutrophil cytoplasmic antibody positive vasculitis
     Dosage: 500 MG, AS PLAN - DOSES VARY, DOSES 500-600MG
     Route: 040
     Dates: start: 20240825, end: 20241014
  3. CYCLOPHOSPHAMIDE [Concomitant]
     Active Substance: CYCLOPHOSPHAMIDE
     Dosage: 660 UNK. SINGLE IV INFUSION
     Route: 040
     Dates: start: 20240909, end: 20240909
  4. CYCLOPHOSPHAMIDE [Concomitant]
     Active Substance: CYCLOPHOSPHAMIDE
     Dosage: 500 UNK. SINGLE IV INFUSION
     Route: 040
     Dates: start: 20240923, end: 20240923
  5. CYCLOPHOSPHAMIDE [Concomitant]
     Active Substance: CYCLOPHOSPHAMIDE
     Dosage: 500 UNK. SINGLE IV INFUSION
     Route: 065
     Dates: start: 20241014, end: 20241014
  6. CYCLOPHOSPHAMIDE [Concomitant]
     Active Substance: CYCLOPHOSPHAMIDE
     Dosage: 500 MG, AS PLAN - DOSES VARY, DOSES 500-600MG
     Route: 040
     Dates: start: 20250811, end: 20250811
  7. METHYLPREDNISOLONE [Concomitant]
     Active Substance: METHYLPREDNISOLONE
     Indication: Anti-neutrophil cytoplasmic antibody positive vasculitis
     Dosage: 500 MG, COMPLETION OF PLANNED COURSE
     Route: 040
     Dates: start: 20240823, end: 20240824
  8. PREDNISOLONE [Concomitant]
     Active Substance: PREDNISOLONE
     Indication: Anti-neutrophil cytoplasmic antibody positive vasculitis
     Dosage: 60 MG, OD, COMPLETION OF PLANNED COURSE
     Route: 048
     Dates: start: 20240825, end: 20240827
  9. PREDNISOLONE [Concomitant]
     Active Substance: PREDNISOLONE
     Dosage: 50 MG, OD, COMPLETION OF PLANNED COURSE
     Route: 048
     Dates: start: 20240828, end: 20240912
  10. PREDNISOLONE [Concomitant]
     Active Substance: PREDNISOLONE
     Dosage: 40 MG, OD, COMPLETION OF PLANNED COURSE
     Route: 048
     Dates: start: 20240913, end: 20240918
  11. PREDNISOLONE [Concomitant]
     Active Substance: PREDNISOLONE
     Dosage: 20 MG, OD, COMPLETION OF PLANNED COURSE
     Route: 048
     Dates: start: 20240919, end: 20240925
  12. PREDNISOLONE [Concomitant]
     Active Substance: PREDNISOLONE
     Dosage: 15 MG, OD, COMPLETION OF PLANNED COURSE
     Route: 048
     Dates: start: 20240926, end: 20241002
  13. PREDNISOLONE [Concomitant]
     Active Substance: PREDNISOLONE
     Dosage: 10 MG, OD, COMPLETION OF PLANNED COURSE
     Route: 048
     Dates: start: 20241003, end: 20241009
  14. PREDNISOLONE [Concomitant]
     Active Substance: PREDNISOLONE
     Dosage: 7.5 MG, OD, COMPLETION OF PLANNED COURSE
     Route: 048
     Dates: start: 20241010, end: 20241016
  15. PREDNISOLONE [Concomitant]
     Active Substance: PREDNISOLONE
     Dosage: 5 MG, OD, COMPLETION OF PLANNED COURSE
     Route: 048
     Dates: start: 20241017, end: 20241023
  16. PREDNISOLONE [Concomitant]
     Active Substance: PREDNISOLONE
     Dosage: 15 UNK
     Route: 048
     Dates: start: 20240926, end: 20241002
  17. RITUXIMAB [Concomitant]
     Active Substance: RITUXIMAB
     Indication: Anti-neutrophil cytoplasmic antibody positive vasculitis
     Dosage: 500 MG SINGLE IV INFUSION
     Route: 040
     Dates: start: 20241212, end: 20241212
  18. RITUXIMAB [Concomitant]
     Active Substance: RITUXIMAB
     Dosage: 500 MG SINGLE IV INFUSION
     Route: 040
     Dates: start: 20250512, end: 20250512
  19. HUMAN PLASMA [Concomitant]
     Active Substance: HUMAN PLASMA
     Indication: Anti-neutrophil cytoplasmic antibody positive vasculitis
     Dosage: 3000 ML, APHERESIS
     Route: 065
     Dates: start: 20240823, end: 20240906

REACTIONS (4)
  - Vasculitis [Recovered/Resolved with Sequelae]
  - Vasculitis [Recovered/Resolved with Sequelae]
  - Vasculitis [Recovered/Resolved with Sequelae]
  - Urinary tract infection enterococcal [Recovered/Resolved]

NARRATIVE: CASE EVENT DATE: 20250129
